FAERS Safety Report 17936461 (Version 1)
Quarter: 2020Q2

REPORT INFORMATION
  Report Type: Spontaneous
  Country: US (occurrence: US)
  Receive Date: 20200624
  Receipt Date: 20200624
  Transmission Date: 20200714
  Serious: No
  Sender: FDA-Public Use
  Company Number: None

PATIENT
  Age: 44 Year
  Sex: Female
  Weight: 85.5 kg

DRUGS (3)
  1. IRON [Concomitant]
     Active Substance: IRON
  2. VENOFER [Suspect]
     Active Substance: IRON SUCROSE
     Indication: IRON DEFICIENCY ANAEMIA
     Dosage: ?          QUANTITY:1 BAG;OTHER FREQUENCY:1 EVERY 3 DAYS FO5;?
     Route: 042
     Dates: start: 20200618, end: 20200618
  3. MULTIVITAMIN [Concomitant]
     Active Substance: VITAMINS

REACTIONS (2)
  - Back pain [None]
  - Peripheral swelling [None]

NARRATIVE: CASE EVENT DATE: 20200618
